FAERS Safety Report 11126739 (Version 1)
Quarter: 2015Q2

REPORT INFORMATION
  Report Type: Report from Study
  Country: TR (occurrence: TR)
  Receive Date: 20150520
  Receipt Date: 20150520
  Transmission Date: 20150821
  Serious: Yes (Other)
  Sender: FDA-Public Use
  Company Number: PHHY2015TR058008

PATIENT
  Age: 11 Year
  Sex: Male
  Weight: 24 kg

DRUGS (1)
  1. SOMATROPIN [Suspect]
     Active Substance: SOMATROPIN
     Indication: GROWTH HORMONE DEFICIENCY
     Dosage: 0.9 MG, QD
     Route: 058
     Dates: start: 20141127, end: 20150508

REACTIONS (3)
  - Foot fracture [Not Recovered/Not Resolved]
  - Abdominal pain upper [Unknown]
  - Fall [Not Recovered/Not Resolved]

NARRATIVE: CASE EVENT DATE: 20150508
